FAERS Safety Report 25494303 (Version 2)
Quarter: 2025Q4

REPORT INFORMATION
  Report Type: Spontaneous
  Country: US (occurrence: US)
  Receive Date: 20250630
  Receipt Date: 20251007
  Transmission Date: 20260119
  Serious: No
  Sender: FERRING
  Company Number: US-FERRINGPH-2025FE01884

PATIENT
  Age: 73 Year
  Sex: Male
  Weight: 90.703 kg

DRUGS (2)
  1. ADSTILADRIN [Suspect]
     Active Substance: NADOFARAGENE FIRADENOVEC-VNCG
     Indication: Product used for unknown indication
     Dosage: UNK
     Route: 065
     Dates: start: 20241211
  2. GEMTESA [Concomitant]
     Active Substance: VIBEGRON
     Indication: Hypertonic bladder
     Dosage: 75 MG, DAILY
     Route: 048
     Dates: start: 20250403, end: 20250412

REACTIONS (3)
  - Influenza like illness [Recovered/Resolved]
  - Instillation site discharge [Recovered/Resolved]
  - Wrong technique in product usage process [Recovered/Resolved]

NARRATIVE: CASE EVENT DATE: 20250410
